FAERS Safety Report 14603098 (Version 5)
Quarter: 2018Q2

REPORT INFORMATION
  Report Type: Report from Study
  Country: US (occurrence: US)
  Receive Date: 20180306
  Receipt Date: 20180605
  Transmission Date: 20180711
  Serious: Yes (Hospitalization, Other)
  Sender: FDA-Public Use
  Company Number: US-GILEAD-2018-0324441

PATIENT
  Age: 70 Year
  Sex: Female
  Weight: 43.99 kg

DRUGS (16)
  1. ENOXAPARIN                         /01708202/ [Concomitant]
     Active Substance: ENOXAPARIN SODIUM
  2. OXYCODONE AND ACETAMINOPHEN [Concomitant]
     Active Substance: ACETAMINOPHEN\OXYCODONE HYDROCHLORIDE
  3. AMLODIPINE [Concomitant]
     Active Substance: AMLODIPINE BESYLATE
  4. PANTOPRAZOLE                       /01263204/ [Concomitant]
     Active Substance: PANTOPRAZOLE SODIUM
  5. FOLIC ACID ALMUS [Concomitant]
     Active Substance: FOLIC ACID
  6. ERGOCALCIFEROL W/FERROUS SULFATE/NICOTINAMIDE [Concomitant]
  7. SPIRONOLACTONE A L [Concomitant]
     Active Substance: SPIRONOLACTONE
  8. ASPIRIN                            /00002701/ [Concomitant]
     Active Substance: ASPIRIN
  9. OXYCODONE                          /00045603/ [Concomitant]
     Active Substance: OXYCODONE
  10. PRAVASTATIN                        /00880402/ [Concomitant]
     Active Substance: PRAVASTATIN SODIUM
  11. PRAMIPEXOLE                        /01356402/ [Concomitant]
  12. AMBRISENTAN [Suspect]
     Active Substance: AMBRISENTAN
     Indication: PRODUCT USED FOR UNKNOWN INDICATION
     Dosage: 10 MG, QD
     Route: 048
     Dates: start: 20160405
  13. REMODULIN [Concomitant]
     Active Substance: TREPROSTINIL
  14. ADCIRCA [Concomitant]
     Active Substance: TADALAFIL
  15. CARBAMAZEPINE A [Concomitant]
  16. FUROSEMIDE                         /00032602/ [Concomitant]
     Active Substance: FUROSEMIDE

REACTIONS (8)
  - Dyspnoea [Not Recovered/Not Resolved]
  - Neurofibromatosis [Not Recovered/Not Resolved]
  - Dyspnoea [Recovered/Resolved]
  - Diarrhoea [Not Recovered/Not Resolved]
  - Injection site pain [Not Recovered/Not Resolved]
  - Pain in jaw [Not Recovered/Not Resolved]
  - Arthralgia [Not Recovered/Not Resolved]
  - Chest pain [Unknown]

NARRATIVE: CASE EVENT DATE: 20180306
